FAERS Safety Report 26016373 (Version 4)
Quarter: 2025Q4

REPORT INFORMATION
  Report Type: Spontaneous
  Country: US (occurrence: US)
  Receive Date: 20251110
  Receipt Date: 20251114
  Transmission Date: 20260117
  Serious: No
  Sender: SANDOZ
  Company Number: US-SANDOZ-SDZ2025US082995

PATIENT
  Sex: Female

DRUGS (1)
  1. ESTRADIOL [Suspect]
     Active Substance: ESTRADIOL
     Indication: Product used for unknown indication
     Dosage: UNK ( ESTRADIOL TRANSDERMAL PATCH, 0.075 MG / 1 10)
     Route: 062

REACTIONS (3)
  - Application site haemorrhage [Unknown]
  - Incorrect dose administered by device [Unknown]
  - Device adhesion issue [Unknown]
